FAERS Safety Report 5042104-9 (Version None)
Quarter: 2006Q2

REPORT INFORMATION
  Report Type: 
  Country: None (occurrence: None)
  Receive Date: 20060627
  Receipt Date: 20060615
  Transmission Date: 20061013
  Serious: No
  Sender: FDA-Public Use
  Company Number: 2006BI006794

PATIENT
  Age: 48 Year
  Sex: Male

DRUGS (4)
  1. AVONEX [Suspect]
     Indication: MULTIPLE SCLEROSIS
     Dosage: 30 UG;QW;IM
     Route: 030
     Dates: start: 20051201, end: 20060401
  2. WELLBUTRIN SR [Concomitant]
  3. BIAXIN [Concomitant]
  4. AMOXICILLIN [Concomitant]

REACTIONS (4)
  - BLADDER DISORDER [None]
  - NAUSEA [None]
  - RASH [None]
  - RENAL FAILURE CHRONIC [None]
